FAERS Safety Report 6491685-7 (Version None)
Quarter: 2009Q4

REPORT INFORMATION
  Report Type: 
  Country: None (occurrence: None)
  Receive Date: 20091125
  Receipt Date: 20090504
  Transmission Date: 20100525
  Serious: Yes (Other)
  Sender: FDA-Public Use
  Company Number: 2009BH008191

PATIENT
  Age: 69 Year
  Sex: Female

DRUGS (24)
  1. DIANEAL [Suspect]
     Indication: PERITONEAL DIALYSIS
     Dosage: ; UNK ; IP
     Route: 033
  2. EPOGEN [Concomitant]
  3. VENOFER [Concomitant]
  4. LABETALOL HCL [Concomitant]
  5. SIMVASTATIN [Concomitant]
  6. HECTOROL [Concomitant]
  7. COENZYME Q10 [Concomitant]
  8. VITAMIN C [Concomitant]
  9. CENTRUM [Concomitant]
  10. VITAMIN D [Concomitant]
  11. MIRALAX [Concomitant]
  12. ASPIRIN [Concomitant]
  13. LANTUS [Concomitant]
  14. COLACE [Concomitant]
  15. AMLODIPINE [Concomitant]
  16. GENTAMICIN [Concomitant]
  17. FORTAZ [Concomitant]
  18. CEFAZOLIN [Concomitant]
  19. FISH OIL [Concomitant]
  20. HUMULIN 70/30 [Concomitant]
  21. REGLAN [Concomitant]
  22. AVAPRO [Concomitant]
  23. FOSRENOL [Concomitant]
  24. TYLENOL-500 [Concomitant]

REACTIONS (4)
  - ABDOMINAL PAIN UPPER [None]
  - FEELING COLD [None]
  - MALAISE [None]
  - PERITONEAL CLOUDY EFFLUENT [None]
